FAERS Safety Report 8276939-6 (Version None)
Quarter: 2012Q2

REPORT INFORMATION
  Report Type: 
  Country: None (occurrence: None)
  Receive Date: 20120412
  Receipt Date: 20120404
  Transmission Date: 20120825
  Serious: Yes (Other)
  Sender: FDA-Public Use
  Company Number: US-ROXANE LABORATORIES, INC.-2012-RO-00995RO

PATIENT
  Age: 30 Year
  Sex: Female

DRUGS (3)
  1. HALOPERIDOL [Suspect]
     Indication: CATATONIA
     Dosage: 15 MG
  2. DIAZEPAM [Suspect]
     Indication: CATATONIA
     Dosage: 15 MG
  3. RISPERIDONE [Suspect]
     Indication: CATATONIA

REACTIONS (1)
  - CATATONIA [None]
